FAERS Safety Report 7492137-8 (Version None)
Quarter: 2011Q2

REPORT INFORMATION
  Report Type: 
  Country: None (occurrence: None)
  Receive Date: 20110519
  Receipt Date: 20110513
  Transmission Date: 20111010
  Serious: Yes (Life-Threatening, Hospitalization, Other)
  Sender: FDA-Public Use
  Company Number: US-AMGEN-USASP2011025242

PATIENT
  Sex: Female

DRUGS (4)
  1. NPLATE [Suspect]
     Indication: IDIOPATHIC THROMBOCYTOPENIC PURPURA
     Dates: start: 20110330
  2. CORTICOSTEROIDS [Concomitant]
  3. PROCRIT                            /00909301/ [Concomitant]
  4. PLATELETS [Concomitant]

REACTIONS (4)
  - ANAEMIA [None]
  - OEDEMA PERIPHERAL [None]
  - CELLULITIS [None]
  - ANAPHYLACTIC REACTION [None]
